FAERS Safety Report 6431543-7 (Version None)
Quarter: 2009Q4

REPORT INFORMATION
  Report Type: 
  Country: None (occurrence: None)
  Receive Date: 20091103
  Receipt Date: 20091019
  Transmission Date: 20100525
  Serious: No
  Sender: FDA-Public Use
  Company Number: 02100-JPN-06-0510

PATIENT
  Age: 71 Year
  Sex: Female
  Weight: 42 kg

DRUGS (4)
  1. PLETAL [Suspect]
     Indication: CEREBRAL INFARCTION
     Dosage: 100 MG, BID; ORAL
     Route: 048
     Dates: start: 20060120, end: 20061026
  2. MICARDIS [Concomitant]
  3. NORVASC [Concomitant]
  4. BISOPROLOL FUMARATE [Concomitant]

REACTIONS (6)
  - CONSTIPATION [None]
  - DERMATITIS CONTACT [None]
  - HEADACHE [None]
  - HYPERTENSION [None]
  - NAUSEA [None]
  - PUTAMEN HAEMORRHAGE [None]
